FAERS Safety Report 6686034-5 (Version None)
Quarter: 2010Q2

REPORT INFORMATION
  Report Type: 
  Country: None (occurrence: None)
  Receive Date: 20100414
  Receipt Date: 20100331
  Transmission Date: 20101027
  Serious: Yes (Death, Hospitalization)
  Sender: FDA-Public Use
  Company Number: 2009AL003776

PATIENT
  Age: 69 Year
  Sex: Male

DRUGS (14)
  1. METFORMIN HCL [Suspect]
     Indication: DIABETES MELLITUS
     Dosage: 1000 MG; BID; PO
     Route: 048
     Dates: start: 20090201, end: 20090512
  2. SIMVASTATIN [Concomitant]
  3. ACETYLSALICYLIC ACID [Concomitant]
  4. FERROUS SULFATE TAB [Concomitant]
  5. RAMIPRIL [Concomitant]
  6. FUROSEMIDE [Concomitant]
  7. SPIRONOLACTONE [Concomitant]
  8. QUETIAPINE [Concomitant]
  9. DOCUSATE [Concomitant]
  10. REPAGLINIDE [Concomitant]
  11. ACETAMINOPHEN [Concomitant]
  12. GLICLAZIDE [Concomitant]
  13. FERROUS SULFATE TAB [Concomitant]
  14. QUETIAPINE [Concomitant]

REACTIONS (22)
  - ACIDOSIS [None]
  - ACUTE LEFT VENTRICULAR FAILURE [None]
  - BLOOD GLUCOSE DECREASED [None]
  - BLOOD GLUCOSE INCREASED [None]
  - CARDIAC FAILURE CONGESTIVE [None]
  - DEHYDRATION [None]
  - DISORIENTATION [None]
  - ELECTROLYTE IMBALANCE [None]
  - GENERAL PHYSICAL HEALTH DETERIORATION [None]
  - HALLUCINATION [None]
  - HYPERTENSION [None]
  - HYPERTENSIVE HEART DISEASE [None]
  - HYPOTENSION [None]
  - HYPOTHERMIA [None]
  - INTESTINAL ISCHAEMIA [None]
  - NEUTROPHIL COUNT DECREASED [None]
  - PARANOIA [None]
  - PNEUMONIA [None]
  - RENAL FAILURE ACUTE [None]
  - SOMNOLENCE [None]
  - TRANSIENT PSYCHOSIS [None]
  - VENTRICULAR TACHYCARDIA [None]
